FAERS Safety Report 10484189 (Version 3)
Quarter: 2014Q4

REPORT INFORMATION
  Report Type: Spontaneous
  Country: FR (occurrence: FR)
  Receive Date: 20140930
  Receipt Date: 20141224
  Transmission Date: 20150528
  Serious: Yes (Hospitalization, Other)
  Sender: FDA-Public Use
  Company Number: FR-RB PHARMACEUTICALS LIMITED-RB-71882-2014

PATIENT
  Age: 0 Year
  Sex: Female
  Weight: 2.81 kg

DRUGS (5)
  1. SYMPATHYL                          /00818101/ [Suspect]
     Active Substance: HAWTHORN LEAF WITH FLOWER\METHENAMINE\PEPTONE, DRIED\PEUMUS BOLDUS\PHENOBARBITAL
     Indication: PALPITATIONS
     Dosage: 1 TABLET, DAILY
     Route: 064
     Dates: start: 20131025, end: 201311
  2. PROGRESS [Suspect]
     Active Substance: UNSPECIFIED INGREDIENT
     Indication: CERVIX DISORDER
     Dosage: UNKNOWN
     Route: 064
  3. NICOTINE. [Suspect]
     Active Substance: NICOTINE
     Indication: PRODUCT USED FOR UNKNOWN INDICATION
     Dosage: 6 CIGARETTES DAILY
     Route: 064
     Dates: start: 20131025, end: 20140703
  4. SUBUTEX [Suspect]
     Active Substance: BUPRENORPHINE HYDROCHLORIDE
     Indication: DRUG DEPENDENCE
     Dosage: 4.2 MG, DAILY
     Route: 064
     Dates: start: 20131025, end: 20140703
  5. CLAMOXYL                           /00249601/ [Suspect]
     Active Substance: AMOXICILLIN\CLAVULANIC ACID
     Indication: PROPHYLAXIS
     Dosage: UNK
     Route: 064
     Dates: start: 20140703

REACTIONS (7)
  - Pathogen resistance [None]
  - Escherichia test positive [None]
  - Drug withdrawal syndrome neonatal [Recovered/Resolved]
  - Foetal exposure during pregnancy [Recovered/Resolved]
  - Maternal drugs affecting foetus [None]
  - Jaundice neonatal [Recovered/Resolved]
  - Lactose intolerance [Not Recovered/Not Resolved]

NARRATIVE: CASE EVENT DATE: 20131025
